FAERS Safety Report 9505610 (Version 1)
Quarter: 2013Q1

REPORT INFORMATION
  Report Type: Spontaneous
  Country: US (occurrence: None)
  Receive Date: 20130221
  Receipt Date: 20130221
  Transmission Date: 20140127
  Serious: Yes (Hospitalization)
  Sender: FDA-Public Use
  Company Number: 1205USA05203

PATIENT
  Age: 86 Year
  Sex: Male

DRUGS (1)
  1. PRINIVIL [Suspect]
     Route: 048
     Dates: start: 20111108

REACTIONS (1)
  - Syncope [None]
